FAERS Safety Report 13233247 (Version 1)
Quarter: 2017Q1

REPORT INFORMATION
  Report Type: Report from Study
  Country: None (occurrence: US)
  Receive Date: 20170215
  Receipt Date: 20170215
  Transmission Date: 20170428
  Serious: Yes (Hospitalization)
  Sender: FDA-Public Use
  Company Number: US-ABBVIE-17K-163-1868827-00

PATIENT
  Age: 62 Year
  Sex: Female

DRUGS (2)
  1. HUMIRA [Suspect]
     Active Substance: ADALIMUMAB
     Indication: RHEUMATOID ARTHRITIS
     Route: 058
     Dates: start: 201610
  2. HUMIRA [Suspect]
     Active Substance: ADALIMUMAB
     Route: 058
     Dates: start: 201701

REACTIONS (7)
  - Dizziness [Recovered/Resolved]
  - Inappropriate schedule of drug administration [Unknown]
  - Arthralgia [Unknown]
  - Pain [Unknown]
  - Haematochezia [Unknown]
  - Muscular weakness [Recovered/Resolved]
  - Full blood count decreased [Unknown]

NARRATIVE: CASE EVENT DATE: 20170125
